FAERS Safety Report 5927829-2 (Version None)
Quarter: 2008Q4

REPORT INFORMATION
  Report Type: 
  Country: None (occurrence: None)
  Receive Date: 20081023
  Receipt Date: 20081016
  Transmission Date: 20090506
  Serious: Yes (Other)
  Sender: FDA-Public Use
  Company Number: DE-ROCHE-592173

PATIENT
  Age: 59 Year
  Sex: Male

DRUGS (12)
  1. CELLCEPT [Suspect]
     Route: 065
     Dates: start: 20080801
  2. PROGRAF [Concomitant]
  3. DECORTIN [Concomitant]
  4. CARVEDILOL [Concomitant]
  5. ASPIRIN [Concomitant]
  6. URSO FALK [Concomitant]
  7. MULTIBIONTA [Concomitant]
  8. SIMVASTATIN [Concomitant]
  9. DIGITOXIN TAB [Concomitant]
  10. MAGNESIUM SULFATE [Concomitant]
  11. FOSAMAX [Concomitant]
  12. ARANESP [Concomitant]

REACTIONS (1)
  - VISUAL FIELD DEFECT [None]
